FAERS Safety Report 9672219 (Version 1)
Quarter: 2013Q4

REPORT INFORMATION
  Report Type: Spontaneous
  Country: DE (occurrence: DE)
  Receive Date: 20131106
  Receipt Date: 20131106
  Transmission Date: 20140711
  Serious: Yes (Other)
  Sender: FDA-Public Use
  Company Number: DE-009507513-1311DEU000257

PATIENT
  Age: 50 Year
  Sex: Female

DRUGS (7)
  1. TAFLOTAN [Suspect]
     Indication: INTRAOCULAR PRESSURE INCREASED
     Route: 047
  2. PREDNISOLONE [Concomitant]
     Dosage: HALF A TABLET IN THE MORNING
  3. CLONID-OPHTAL [Concomitant]
     Dosage: 1/8 TWICE DAILY
  4. VIANI FORTE [Concomitant]
     Dosage: TWICE DAILY
  5. NASONEX [Concomitant]
     Dosage: IN THE EVENING
  6. AERIUS [Concomitant]
     Dosage: IN THE EVENING
  7. ZINC OXIDE [Concomitant]
     Dosage: OINTMENT AS SPRAY FOR THE SKIN AS NEEDED
     Route: 061

REACTIONS (1)
  - Anaphylactic reaction [Recovered/Resolved]
